FAERS Safety Report 6419070-4 (Version None)
Quarter: 2009Q4

REPORT INFORMATION
  Report Type: 
  Country: None (occurrence: None)
  Receive Date: 20091029
  Receipt Date: 20090928
  Transmission Date: 20100525
  Serious: No
  Sender: FDA-Public Use
  Company Number: US-BAYER-200934650NA

PATIENT
  Age: 19 Year
  Sex: Female

DRUGS (1)
  1. MIRENA [Suspect]
     Indication: DRUG USE FOR UNKNOWN INDICATION
     Dosage: CONTINUOUS DELIVERY
     Route: 015
     Dates: start: 20080714

REACTIONS (6)
  - ABDOMINAL PAIN [None]
  - DIZZINESS [None]
  - HOT FLUSH [None]
  - NAUSEA [None]
  - TINNITUS [None]
  - VAGINAL HAEMORRHAGE [None]
